FAERS Safety Report 6448541-X (Version None)
Quarter: 2009Q4

REPORT INFORMATION
  Report Type: 
  Country: None (occurrence: None)
  Receive Date: 20091119
  Receipt Date: 20091119
  Transmission Date: 20100525
  Serious: Yes (Hospitalization)
  Sender: FDA-Public Use
  Company Number: None

PATIENT
  Age: 65 Year
  Sex: Male
  Weight: 113 kg

DRUGS (2)
  1. AMOXICILLIN AND CLAVULANATE POTASSIUM [Suspect]
     Indication: OSTEOMYELITIS
     Dosage: 875/125 MG BID PO
     Route: 048
     Dates: start: 20091030, end: 20091031
  2. CLINDAMYCIN [Suspect]
     Dosage: 300 MG QID PO
     Route: 048
     Dates: start: 20091101, end: 20091101

REACTIONS (7)
  - BLISTER [None]
  - DRUG HYPERSENSITIVITY [None]
  - DYSPNOEA [None]
  - MIDDLE INSOMNIA [None]
  - PRURITUS GENERALISED [None]
  - RASH [None]
  - URTICARIA [None]
